FAERS Safety Report 5824205-8 (Version None)
Quarter: 2008Q3

REPORT INFORMATION
  Report Type: 
  Country: None (occurrence: None)
  Receive Date: 20080728
  Receipt Date: 20080718
  Transmission Date: 20090109
  Serious: Yes (Other)
  Sender: FDA-Public Use
  Company Number: FI-AMGEN-UK288197

PATIENT
  Age: 3 Year
  Sex: Male
  Weight: 17 kg

DRUGS (8)
  1. NEUPOGEN [Suspect]
     Indication: NEUTROPENIA
     Route: 058
     Dates: start: 20080411, end: 20080612
  2. PREDNISOLONE [Concomitant]
     Route: 048
  3. HYDROCORTISONE [Concomitant]
     Route: 048
  4. POSACONAZOLE [Concomitant]
     Route: 048
  5. NORDITROPIN [Concomitant]
     Route: 030
  6. REMICADE [Concomitant]
     Route: 042
  7. MABTHERA [Concomitant]
     Route: 042
     Dates: start: 20080601
  8. IMMUNOGLOBULINS [Concomitant]
     Route: 042

REACTIONS (3)
  - ANTI-PLATELET ANTIBODY [None]
  - IMMUNE COMPLEX LEVEL INCREASED [None]
  - THERAPEUTIC RESPONSE DECREASED [None]
